FAERS Safety Report 9650428 (Version 3)
Quarter: 2013Q4

REPORT INFORMATION
  Report Type: Report from Study
  Country: CA (occurrence: CA)
  Receive Date: 20131028
  Receipt Date: 20131202
  Transmission Date: 20140711
  Serious: Yes (Life-Threatening)
  Sender: FDA-Public Use
  Company Number: CA-US-EMD SERONO, INC.-7245498

PATIENT
  Age: 33 Year
  Sex: Female

DRUGS (3)
  1. REBIF [Suspect]
     Indication: RELAPSING-REMITTING MULTIPLE SCLEROSIS
     Route: 058
     Dates: start: 20131002, end: 20131021
  2. SEROQUEL                           /01270901/ [Concomitant]
     Indication: DEPRESSION
     Route: 048
  3. CIPRALEX                           /01588501/ [Concomitant]
     Indication: DEPRESSION
     Route: 048

REACTIONS (2)
  - Suicidal ideation [Recovered/Resolved with Sequelae]
  - Injection site extravasation [Unknown]
